FAERS Safety Report 18626674 (Version 1)
Quarter: 2020Q4

REPORT INFORMATION
  Report Type: Report from Study
  Country: IL (occurrence: IL)
  Receive Date: 20201217
  Receipt Date: 20201217
  Transmission Date: 20210114
  Serious: Yes (Other)
  Sender: FDA-Public Use
  Company Number: IL-SUN PHARMACEUTICAL INDUSTRIES LTD-2020R1-271189

PATIENT
  Age: 13 Year
  Sex: Female

DRUGS (1)
  1. PREDNISONE. [Suspect]
     Active Substance: PREDNISONE
     Indication: PRODUCT USED FOR UNKNOWN INDICATION
     Dosage: 1.75 MG/KG
     Route: 065

REACTIONS (4)
  - Septic shock [Unknown]
  - Pseudomonas infection [Unknown]
  - Febrile neutropenia [Recovered/Resolved]
  - Pneumonia [Unknown]
